FAERS Safety Report 19210989 (Version 1)
Quarter: 2021Q2

REPORT INFORMATION
  Report Type: Spontaneous
  Country: CN (occurrence: CN)
  Receive Date: 20210504
  Receipt Date: 20210504
  Transmission Date: 20210717
  Serious: Yes (Other)
  Sender: FDA-Public Use
  Company Number: CN-CELGENEUS-CHN-20210407196

PATIENT
  Age: 76 Year
  Sex: Female

DRUGS (1)
  1. AZACITIDINE. [Suspect]
     Active Substance: AZACITIDINE
     Indication: ACUTE MYELOID LEUKAEMIA
     Dosage: 75 MILLIGRAM/SQ. METER (1?4  COURSE OF TREATMENT)
     Route: 065

REACTIONS (3)
  - Hypoxia [Unknown]
  - Myelosuppression [Unknown]
  - Pneumonia [Recovering/Resolving]
